FAERS Safety Report 8301496-5 (Version None)
Quarter: 2012Q2

REPORT INFORMATION
  Report Type: 
  Country: None (occurrence: None)
  Receive Date: 20120420
  Receipt Date: 20120418
  Transmission Date: 20120825
  Serious: Yes (Death)
  Sender: FDA-Public Use
  Company Number: PHHO2012IL006116

PATIENT
  Sex: Female

DRUGS (2)
  1. AFINITOR [Suspect]
     Indication: METASTASES TO LIVER
  2. AFINITOR [Suspect]
     Indication: METASTATIC BRONCHIAL CARCINOMA
     Dosage: UNK

REACTIONS (1)
  - DEATH [None]
